FAERS Safety Report 6427033-8 (Version None)
Quarter: 2009Q4

REPORT INFORMATION
  Report Type: 
  Country: None (occurrence: None)
  Receive Date: 20091103
  Receipt Date: 20091103
  Transmission Date: 20100525
  Serious: Yes (Life-Threatening, Hospitalization)
  Sender: FDA-Public Use
  Company Number: None

PATIENT
  Age: 59 Year
  Sex: Male
  Weight: 110.73 kg

DRUGS (1)
  1. PREDNISONE [Suspect]
     Dosage: 30 MG EVERY DAY PO
     Route: 048
     Dates: start: 20090303, end: 20090531

REACTIONS (2)
  - HEPARIN-INDUCED THROMBOCYTOPENIA [None]
  - MYOPATHY [None]
